FAERS Safety Report 9870315 (Version 1)
Quarter: 2014Q1

REPORT INFORMATION
  Report Type: Spontaneous
  Country: NO (occurrence: NO)
  Receive Date: 20140205
  Receipt Date: 20140205
  Transmission Date: 20141002
  Serious: Yes (Hospitalization, Other)
  Sender: FDA-Public Use
  Company Number: NO-PFIZER INC-2014031192

PATIENT
  Age: 62 Year
  Sex: Female

DRUGS (12)
  1. NARDIL [Suspect]
     Indication: BIPOLAR DISORDER
     Dosage: UNK
     Dates: start: 200701
  2. NARDIL [Suspect]
     Dosage: 60 MG IN THE MORNING AND 60 MG IN THE EVENING
     Dates: start: 200801
  3. NARDIL [Suspect]
     Dosage: 150 MG, DAILY
     Dates: start: 20110715
  4. NARDIL [Suspect]
     Dosage: 135 MG, DAILY
  5. NARDIL [Suspect]
     Dosage: 150 MG, DAILY
  6. NARDIL [Suspect]
     Dosage: 165 MG, DAILY
  7. NARDIL [Suspect]
     Dosage: 150 MG, DAILY
  8. NARDIL [Suspect]
     Dosage: 180 MG PER DAY
     Dates: start: 201207
  9. NARDIL [Suspect]
     Dosage: 60 MG PER DAY
     Dates: start: 201210, end: 201301
  10. LAMICTAL [Concomitant]
  11. LITHIUM [Concomitant]
     Dosage: UNK
     Dates: end: 20120615
  12. REMERON [Concomitant]
     Dosage: UNK

REACTIONS (7)
  - Serotonin syndrome [Unknown]
  - Polyneuropathy [Not Recovered/Not Resolved]
  - Syncope [Recovered/Resolved]
  - Tremor [Not Recovered/Not Resolved]
  - Dizziness [Recovered/Resolved]
  - Sensory disturbance [Unknown]
  - Drug tolerance [Unknown]
